FAERS Safety Report 4865997-4 (Version None)
Quarter: 2005Q4

REPORT INFORMATION
  Report Type: 
  Country: None (occurrence: None)
  Receive Date: 20051221
  Receipt Date: 20051208
  Transmission Date: 20060501
  Serious: Yes (Hospitalization)
  Sender: FDA-Public Use
  Company Number: B0403975A

PATIENT
  Age: 29 Year
  Sex: Female

DRUGS (3)
  1. FLOLAN [Suspect]
     Indication: PULMONARY HYPERTENSION
     Dosage: CATHETER
  2. LOW MW HEPARIN (LOW MW HEPARIN) [Suspect]
  3. WARFARIN SODIUM [Concomitant]

REACTIONS (6)
  - CAESAREAN SECTION [None]
  - CHEST PAIN [None]
  - DRUG EXPOSURE DURING PREGNANCY [None]
  - DYSPNOEA EXERTIONAL [None]
  - PALPITATIONS [None]
  - PULMONARY ARTERIAL PRESSURE INCREASED [None]
